FAERS Safety Report 6664527-4 (Version None)
Quarter: 2010Q2

REPORT INFORMATION
  Report Type: 
  Country: None (occurrence: None)
  Receive Date: 20100401
  Receipt Date: 20100325
  Transmission Date: 20101027
  Serious: Yes (Death, Other)
  Sender: FDA-Public Use
  Company Number: TR-ABBOTT-10P-161-0634153-00

PATIENT
  Age: 57 Year
  Sex: Female

DRUGS (2)
  1. BIPERIDEN HYDROCHLORIDE TAB [Suspect]
     Indication: SCHIZOPHRENIA, PARANOID TYPE
  2. HALOPERIDOL [Suspect]
     Indication: SCHIZOPHRENIA, PARANOID TYPE

REACTIONS (1)
  - NEUROLEPTIC MALIGNANT SYNDROME [None]
